FAERS Safety Report 14742274 (Version 1)
Quarter: 2018Q2

REPORT INFORMATION
  Report Type: Spontaneous
  Country: GB (occurrence: GB)
  Receive Date: 20180410
  Receipt Date: 20180410
  Transmission Date: 20180711
  Serious: Yes (Other)
  Sender: FDA-Public Use
  Company Number: GB-PFIZER INC-2018142681

PATIENT
  Age: 67 Year
  Sex: Male

DRUGS (1)
  1. LYRICA [Suspect]
     Active Substance: PREGABALIN
     Indication: NEURALGIA
     Dosage: 100 MG, DAILY (25 MG IN THE MORNING AND MIDDAY AND 50 MG IN THE EVENING)

REACTIONS (3)
  - Confusional state [Unknown]
  - Condition aggravated [Unknown]
  - Dementia [Unknown]
